FAERS Safety Report 11230165 (Version 1)
Quarter: 2015Q3

REPORT INFORMATION
  Report Type: Spontaneous
  Country: US (occurrence: US)
  Receive Date: 20150701
  Receipt Date: 20150701
  Transmission Date: 20151125
  Serious: Yes (Hospitalization, Other)
  Sender: FDA-Public Use
  Company Number: US-DRREDDYS-USA/USA/15/0048995

PATIENT
  Age: 65 Year
  Sex: Male

DRUGS (3)
  1. NATEGLINIDE TABLETS [Suspect]
     Active Substance: NATEGLINIDE
     Indication: DIABETES MELLITUS
     Route: 048
  2. GLYBURIDE/METFORMIN [Suspect]
     Active Substance: GLYBURIDE\METFORMIN
     Indication: DIABETES MELLITUS
     Route: 065
  3. TENOFOVIR [Concomitant]
     Active Substance: TENOFOVIR
     Indication: HEPATITIS B
     Route: 065

REACTIONS (7)
  - Acute kidney injury [Recovered/Resolved]
  - VIIth nerve paralysis [Recovered/Resolved]
  - Toxicity to various agents [Unknown]
  - Mental status changes [Recovered/Resolved]
  - Hypoglycaemia [Recovered/Resolved]
  - Hemiparesis [Recovered/Resolved]
  - Vomiting [Recovered/Resolved]
